FAERS Safety Report 10416735 (Version 1)
Quarter: 2014Q3

REPORT INFORMATION
  Report Type: Spontaneous
  Country: US (occurrence: US)
  Receive Date: 20140828
  Receipt Date: 20140828
  Transmission Date: 20150326
  Serious: Yes (Other)
  Sender: FDA-Public Use
  Company Number: US-PFIZER INC-2014235724

PATIENT
  Age: 64 Year
  Sex: Male
  Weight: 68.03 kg

DRUGS (1)
  1. ADVIL PM [Suspect]
     Active Substance: DIPHENHYDRAMINE CITRATE\IBUPROFEN
     Indication: SLEEP DISORDER
     Dosage: UNK
     Dates: start: 201405, end: 201405

REACTIONS (9)
  - Irritability [Unknown]
  - Brain injury [Unknown]
  - Drug ineffective [Unknown]
  - Head discomfort [Unknown]
  - Somnolence [Unknown]
  - Feeling abnormal [Unknown]
  - Insomnia [Unknown]
  - Encephalitis [Unknown]
  - Headache [Unknown]

NARRATIVE: CASE EVENT DATE: 201405
